FAERS Safety Report 5215575-2 (Version None)
Quarter: 2007Q1

REPORT INFORMATION
  Report Type: 
  Country: None (occurrence: None)
  Receive Date: 20070123
  Receipt Date: 20060306
  Transmission Date: 20070707
  Serious: Yes (Death)
  Sender: FDA-Public Use
  Company Number: GB-BAXTER-2006BH000495

PATIENT
  Sex: Female

DRUGS (12)
  1. DEXTROSE 5% [Suspect]
     Indication: OVARIAN CANCER
     Route: 042
     Dates: start: 20060110, end: 20060110
  2. DEXTROSE 5% [Suspect]
     Route: 042
     Dates: start: 20051221, end: 20051221
  3. SODIUM CHLORIDE 0.9% [Suspect]
     Indication: OVARIAN CANCER
     Route: 042
     Dates: start: 20060110, end: 20060110
  4. SODIUM CHLORIDE 0.9% [Suspect]
     Route: 042
     Dates: start: 20051221, end: 20051221
  5. CARBOPLATIN [Suspect]
     Indication: OVARIAN CANCER
     Route: 042
     Dates: start: 20060110, end: 20060110
  6. CARBOPLATIN [Suspect]
     Route: 042
     Dates: start: 20051221, end: 20051221
  7. PACLITAXEL [Suspect]
     Route: 042
     Dates: start: 20060110, end: 20060110
  8. PACLITAXEL [Suspect]
     Route: 042
     Dates: start: 20051221, end: 20051221
  9. CARBOPLATIN [Concomitant]
     Route: 042
     Dates: start: 20051221
  10. PACLITAXEL [Concomitant]
     Route: 042
     Dates: start: 20051221
  11. CARBOPLATIN [Concomitant]
     Route: 042
     Dates: start: 20060110
  12. PACLITAXEL [Concomitant]
     Route: 042
     Dates: start: 20060110

REACTIONS (2)
  - DYSPNOEA [None]
  - MYOCARDIAL INFARCTION [None]
